FAERS Safety Report 9493196 (Version 2)
Quarter: 2013Q3

REPORT INFORMATION
  Report Type: Spontaneous
  Country: US (occurrence: US)
  Receive Date: 20130902
  Receipt Date: 20130912
  Transmission Date: 20140515
  Serious: Yes (Hospitalization)
  Sender: FDA-Public Use
  Company Number: US-009507513-1308USA014780

PATIENT
  Age: 72 Year
  Sex: Female

DRUGS (2)
  1. FOSAMAX [Suspect]
     Dosage: 35 MG, QW
     Route: 048
  2. CALCIUM (UNSPECIFIED) [Concomitant]

REACTIONS (1)
  - Adverse event [Not Recovered/Not Resolved]
